FAERS Safety Report 21168578 (Version 2)
Quarter: 2022Q3

REPORT INFORMATION
  Report Type: Spontaneous
  Country: US (occurrence: US)
  Receive Date: 20220803
  Receipt Date: 20220822
  Transmission Date: 20221027
  Serious: Yes (Other)
  Sender: FDA-Public Use
  Company Number: US-BAYER-2022A105415

PATIENT
  Age: 38 Year
  Sex: Male

DRUGS (3)
  1. JIVI [Suspect]
     Active Substance: DAMOCTOCOG ALFA PEGOL
     Dosage: 3500 IU, BIW
     Route: 042
  2. JIVI [Suspect]
     Active Substance: DAMOCTOCOG ALFA PEGOL
     Dosage: 3500 IU, PRN
     Route: 042
  3. JIVI [Suspect]
     Active Substance: DAMOCTOCOG ALFA PEGOL
     Dosage: 2 DF, ONCE; FOR HAND BLEED TREATMENT
     Route: 042
     Dates: start: 2022, end: 2022

REACTIONS (2)
  - Traumatic haemorrhage [Recovered/Resolved]
  - Accident [None]

NARRATIVE: CASE EVENT DATE: 20220724
